FAERS Safety Report 6878375-3 (Version None)
Quarter: 2010Q3

REPORT INFORMATION
  Report Type: 
  Country: None (occurrence: None)
  Receive Date: 20100728
  Receipt Date: 20100722
  Transmission Date: 20110219
  Serious: Yes (Hospitalization)
  Sender: FDA-Public Use
  Company Number: IT-TEVA-242567ISR

PATIENT
  Sex: Female

DRUGS (5)
  1. FLUOROURACIL [Suspect]
     Indication: COLON CANCER STAGE IV
     Route: 042
     Dates: start: 20100513, end: 20100625
  2. CALCIUM LEVOFOLINATE [Suspect]
     Indication: COLON CANCER STAGE IV
     Route: 042
     Dates: start: 20100513, end: 20100625
  3. OXALIPLATIN [Suspect]
     Indication: COLON CANCER STAGE IV
     Route: 042
     Dates: start: 20100513, end: 20100625
  4. AMLODIPINE [Concomitant]
     Indication: HYPERTENSION
     Route: 048
     Dates: start: 19900101, end: 20100628
  5. METFORMIN HCL [Concomitant]
     Indication: TYPE 2 DIABETES MELLITUS
     Route: 048

REACTIONS (5)
  - DIARRHOEA [None]
  - HYPERPYREXIA [None]
  - NAUSEA [None]
  - OLIGURIA [None]
  - RENAL FAILURE ACUTE [None]
